FAERS Safety Report 19120202 (Version 1)
Quarter: 2021Q2

REPORT INFORMATION
  Report Type: Spontaneous
  Country: US (occurrence: US)
  Receive Date: 20210412
  Receipt Date: 20210412
  Transmission Date: 20210717
  Serious: No
  Sender: FDA-Public Use
  Company Number: US-SA-2021SA116959

PATIENT
  Sex: Male

DRUGS (5)
  1. COREG [Concomitant]
     Active Substance: CARVEDILOL
     Dosage: UNK
  2. ASPIR LOW [Concomitant]
     Active Substance: ASPIRIN
  3. LIPITOR [Concomitant]
     Active Substance: ATORVASTATIN CALCIUM
     Dosage: 81MG
  4. DUPIXENT [Suspect]
     Active Substance: DUPILUMAB
     Indication: DERMATITIS ATOPIC
     Dosage: DOUBLE UP ON DOSES
     Route: 003
  5. LASIX [Concomitant]
     Active Substance: FUROSEMIDE
     Dosage: 20MG

REACTIONS (11)
  - Skin ulcer [Not Recovered/Not Resolved]
  - Product use issue [Unknown]
  - Off label use [Unknown]
  - Dermatitis atopic [Not Recovered/Not Resolved]
  - Skin exfoliation [Unknown]
  - Eczema [Unknown]
  - Skin fissures [Unknown]
  - Pruritus [Unknown]
  - Dry skin [Unknown]
  - Skin haemorrhage [Unknown]
  - Therapeutic response decreased [Not Recovered/Not Resolved]
